FAERS Safety Report 9744042 (Version 3)
Quarter: 2014Q2

REPORT INFORMATION
  Report Type: Report from Study
  Country: US (occurrence: US)
  Receive Date: 20131210
  Receipt Date: 20140425
  Transmission Date: 20141212
  Serious: Yes (Life-Threatening, Hospitalization)
  Sender: FDA-Public Use
  Company Number: US-GLAXOSMITHKLINE-A1052757A

PATIENT
  Age: 18 Year
  Sex: Male
  Weight: 87.6 kg

DRUGS (12)
  1. NELARABINE [Suspect]
     Indication: T-CELL TYPE ACUTE LEUKAEMIA
     Dosage: 650MGM2 CYCLIC
     Route: 042
     Dates: start: 20121228
  2. MERCAPTOPURINE [Suspect]
     Indication: T-CELL TYPE ACUTE LEUKAEMIA
     Dosage: 75MGM2 CYCLIC
     Route: 048
     Dates: start: 20130104
  3. VINCRISTINE [Suspect]
     Indication: T-CELL TYPE ACUTE LEUKAEMIA
     Dosage: 1.5MGM2 CYCLIC
     Route: 042
  4. DEXAMETHASONE [Suspect]
     Indication: T-CELL TYPE ACUTE LEUKAEMIA
     Dosage: 3MGM2 CYCLIC
     Route: 048
     Dates: end: 20130624
  5. METHOTREXATE [Suspect]
     Indication: T-CELL TYPE ACUTE LEUKAEMIA
     Dosage: 20MGM2 CYCLIC
     Route: 048
  6. METHOTREXATE [Suspect]
     Indication: T-CELL TYPE ACUTE LEUKAEMIA
     Route: 037
  7. CYCLOPHOSPHAMIDE [Suspect]
     Indication: T-CELL TYPE ACUTE LEUKAEMIA
     Dates: end: 20130624
  8. CYTARABINE [Suspect]
     Indication: T-CELL TYPE ACUTE LEUKAEMIA
     Dates: end: 20130704
  9. DAUNORUBICIN [Suspect]
     Indication: T-CELL TYPE ACUTE LEUKAEMIA
     Dates: end: 20121214
  10. DOXORUBICIN HYDROCHLORIDE [Suspect]
     Indication: T-CELL TYPE ACUTE LEUKAEMIA
     Dates: end: 20130529
  11. PEG-ASPARAGINASE [Suspect]
     Indication: T-CELL TYPE ACUTE LEUKAEMIA
     Dates: end: 20130710
  12. PREDNISONE [Suspect]
     Indication: T-CELL TYPE ACUTE LEUKAEMIA

REACTIONS (2)
  - Transverse sinus thrombosis [Recovered/Resolved]
  - Lipase increased [Recovered/Resolved]
